FAERS Safety Report 19206909 (Version 2)
Quarter: 2021Q2

REPORT INFORMATION
  Report Type: Report from Study
  Country: US (occurrence: US)
  Receive Date: 20210430
  Receipt Date: 20210630
  Transmission Date: 20210717
  Serious: Yes (Hospitalization)
  Sender: FDA-Public Use
  Company Number: US-REGENERON PHARMACEUTICALS, INC.-2021-45241

PATIENT

DRUGS (39)
  1. PANTOPRAZOLE [Concomitant]
     Active Substance: PANTOPRAZOLE
     Dosage: 40 MG, BID
     Route: 048
     Dates: start: 20210403
  2. DEXAMETHASONE. [Concomitant]
     Active Substance: DEXAMETHASONE
     Dosage: 6 MG, BID
     Route: 048
     Dates: start: 20210406, end: 20210412
  3. DEXAMETHASONE. [Concomitant]
     Active Substance: DEXAMETHASONE
     Dosage: 2 MG, BID
     Route: 048
     Dates: start: 20210302, end: 20210327
  4. BISACODYL. [Concomitant]
     Active Substance: BISACODYL
     Indication: CONSTIPATION
     Dosage: 10 MG, QD
     Route: 054
     Dates: start: 20210124
  5. METHYLPREDNISOLONE. [Concomitant]
     Active Substance: METHYLPREDNISOLONE
     Indication: COLITIS
     Dosage: 49.6 MG, BID
     Route: 042
     Dates: start: 20210330, end: 20210331
  6. ZOSYN [Concomitant]
     Active Substance: PIPERACILLIN SODIUM\TAZOBACTAM SODIUM
     Indication: ABDOMINAL PAIN
     Dosage: 4000 MG, Q6H
     Route: 042
     Dates: start: 20210330, end: 20210401
  7. MORPHINE [Concomitant]
     Active Substance: MORPHINE
     Indication: COLITIS
     Dosage: 2 MG, Q3
     Route: 042
     Dates: start: 20210327, end: 20210331
  8. FENTANYL. [Concomitant]
     Active Substance: FENTANYL
     Indication: COLONOSCOPY
     Dosage: 25 ?G, AS NECESSARY
     Route: 042
     Dates: start: 20210329, end: 20210329
  9. SUGAMMADEX [Concomitant]
     Active Substance: SUGAMMADEX
     Indication: COLONOSCOPY
     Dosage: 150 MG, AS NECESSARY
     Route: 042
     Dates: start: 20210329, end: 20210329
  10. DICYCLOMINE                        /00068601/ [Concomitant]
     Active Substance: DICYCLOMINE HYDROCHLORIDE
     Indication: ABDOMINAL PAIN
     Dosage: 20 MG, TID
     Route: 048
     Dates: start: 20210328, end: 20210401
  11. PANTOPRAZOLE [Concomitant]
     Active Substance: PANTOPRAZOLE
     Indication: RECTAL HAEMORRHAGE
     Dosage: 40 MG, QOD
     Route: 042
     Dates: start: 20210327, end: 20210402
  12. MIRALAX [Concomitant]
     Active Substance: POLYETHYLENE GLYCOL 3350
     Indication: CONSTIPATION
     Dosage: 34 G, BID
     Route: 048
     Dates: start: 20210127, end: 20210325
  13. MORPHINE [Concomitant]
     Active Substance: MORPHINE
     Indication: ABDOMINAL PAIN
     Dosage: 6 MG, Q3
     Route: 048
     Dates: start: 20210330, end: 20210401
  14. MORPHINE [Concomitant]
     Active Substance: MORPHINE
     Dosage: 12 MG, Q4H
     Route: 048
     Dates: start: 20210402, end: 20210403
  15. PROPOFOL. [Concomitant]
     Active Substance: PROPOFOL
     Indication: COLONOSCOPY
     Dosage: 50?150MG, AS NECESSARY
     Route: 042
     Dates: start: 20210329, end: 20210329
  16. AMLODIPINE [Concomitant]
     Active Substance: AMLODIPINE BESYLATE
     Indication: HYPERTENSION
     Dosage: 5 MG, QD
     Route: 048
     Dates: start: 20210404, end: 20210410
  17. RADIOTHERAPY [Concomitant]
     Active Substance: RADIATION THERAPY
     Indication: MALIGNANT GLIOMA
     Dosage: RIGHT PARIETAL 3 CGY 10 FRACTIONS 10 DAYS (ACTUAL DOSE ADMINISTERED 3500, TOTAL PLANNED DOSE 35 CGY)
     Dates: start: 20201217, end: 20201231
  18. MORPHINE [Concomitant]
     Active Substance: MORPHINE
     Dosage: 12 MG, Q3
     Route: 048
     Dates: start: 20210401, end: 20210401
  19. MORPHINE [Concomitant]
     Active Substance: MORPHINE
     Dosage: 15MG, Q4H
     Route: 048
     Dates: start: 20210403, end: 20210404
  20. ONDANSETRON [Concomitant]
     Active Substance: ONDANSETRON
     Indication: COLONOSCOPY
     Dosage: 4 MG, AS NECESSARY
     Route: 042
     Dates: start: 20210329, end: 20210329
  21. DEXAMETHASONE. [Concomitant]
     Active Substance: DEXAMETHASONE
     Dosage: 9 MG, BID
     Route: 048
     Dates: start: 20210403, end: 20210405
  22. MESALAMINE. [Concomitant]
     Active Substance: MESALAMINE
     Indication: COLITIS
     Dosage: 4 G, QD
     Route: 054
     Dates: start: 20210401
  23. SENNOSIDES A+B [Concomitant]
     Active Substance: SENNOSIDES A AND B
     Indication: CONSTIPATION
     Dosage: 17.2 G, NIGHTLY
     Route: 048
     Dates: start: 20210127, end: 20210312
  24. FAMOTIDINE. [Concomitant]
     Active Substance: FAMOTIDINE
     Indication: GASTROOESOPHAGEAL REFLUX PROPHYLAXIS
     Dosage: 20 MG, BID
     Route: 048
     Dates: start: 20210121, end: 20210325
  25. SIMETHICONE (DIMETHICONE) [Concomitant]
     Active Substance: DIMETHICONE
     Indication: FLATULENCE
     Dosage: 80 MG, Q6H
     Route: 048
     Dates: start: 20210330
  26. DEXAMETHASONE. [Concomitant]
     Active Substance: DEXAMETHASONE
     Indication: FALL
     Dosage: 9.2 MG, BID
     Route: 042
     Dates: start: 20210401, end: 20210403
  27. DIPHENHYDRAMINE. [Concomitant]
     Active Substance: DIPHENHYDRAMINE
     Indication: NAUSEA
     Dosage: 25 MG, Q4H
     Route: 048
     Dates: start: 20210404
  28. ACETAMINOPHEN. [Concomitant]
     Active Substance: ACETAMINOPHEN
     Indication: ABDOMINAL PAIN
     Dosage: 500 MG, Q6H
     Route: 048
     Dates: start: 20210328, end: 20210331
  29. MIRALAX [Concomitant]
     Active Substance: POLYETHYLENE GLYCOL 3350
     Indication: COLONOSCOPY
     Dosage: 17 G, Q1H
     Route: 048
     Dates: start: 20210327, end: 20210329
  30. COLACE [Concomitant]
     Active Substance: DOCUSATE SODIUM
     Indication: CONSTIPATION
     Dosage: 50 MG, QD
     Route: 048
     Dates: start: 20210122, end: 20210325
  31. DEXMEDETOMIDINE. [Concomitant]
     Active Substance: DEXMEDETOMIDINE
     Indication: COLONOSCOPY
     Dosage: 4 ?G, AS NECESSARY
     Route: 042
     Dates: start: 20210329, end: 20210329
  32. DEXAMETHASONE. [Concomitant]
     Active Substance: DEXAMETHASONE
     Indication: NERVOUS SYSTEM DISORDER
     Dosage: 2 MG, BID
     Route: 048
     Dates: start: 20210302, end: 20210327
  33. DEXAMETHASONE. [Concomitant]
     Active Substance: DEXAMETHASONE
     Indication: COLITIS
     Dosage: 12 MG, ONCE
     Route: 042
     Dates: start: 20210331, end: 20210331
  34. MORPHINE [Concomitant]
     Active Substance: MORPHINE
     Dosage: 15MG, Q4H
     Route: 048
     Dates: start: 20210405, end: 20210406
  35. ROCURONIUM [Concomitant]
     Active Substance: ROCURONIUM BROMIDE
     Indication: COLONOSCOPY
     Dosage: 50 MG, AS NECESSARY
     Route: 042
     Dates: start: 20210329, end: 20210329
  36. OXYCODONE [Concomitant]
     Active Substance: OXYCODONE
     Indication: ABDOMINAL PAIN
     Dosage: 5 MG, Q4H
     Route: 048
     Dates: start: 20210325, end: 20210406
  37. CEMIPLIMAB [Suspect]
     Active Substance: CEMIPLIMAB
     Indication: MALIGNANT GLIOMA
     Dosage: 3 MG/KG, DAY 1 AND 15 OF 28?DAY CYCLE
     Route: 042
     Dates: start: 20201217, end: 20210325
  38. ACETAMINOPHEN. [Concomitant]
     Active Substance: ACETAMINOPHEN
     Indication: HEADACHE
     Dosage: 650 MG, UNK
     Route: 048
     Dates: start: 20201217
  39. HYOSCYAMINE. [Concomitant]
     Active Substance: HYOSCYAMINE
     Indication: ABDOMINAL PAIN
     Dosage: 0.125 MG, Q4H
     Route: 048
     Dates: start: 20210401

REACTIONS (4)
  - Alanine aminotransferase increased [Recovered/Resolved]
  - Myalgia [Recovered/Resolved with Sequelae]
  - Arthralgia [Recovered/Resolved with Sequelae]
  - Aspartate aminotransferase increased [Recovered/Resolved]

NARRATIVE: CASE EVENT DATE: 20210408
